FAERS Safety Report 9518616 (Version 3)
Quarter: 2013Q4

REPORT INFORMATION
  Report Type: Spontaneous
  Country: US (occurrence: US)
  Receive Date: 20130912
  Receipt Date: 20131009
  Transmission Date: 20140711
  Serious: Yes (Other)
  Sender: FDA-Public Use
  Company Number: PHEH2013US018944

PATIENT
  Sex: Female
  Weight: 51.7 kg

DRUGS (6)
  1. TEGRETOL [Suspect]
     Dosage: 200 MG QID
     Route: 048
  2. TEGRETOL [Suspect]
     Dosage: 2 DF, UNK
  3. TEGRETOL [Suspect]
     Dosage: UNK UKN, UNK
  4. VITAMIN D [Concomitant]
     Dosage: UNK UKN, UNK
  5. ZOLOFT [Concomitant]
     Dosage: UNK UKN, UNK
  6. XANAX [Concomitant]
     Dosage: UNK UKN, PRN

REACTIONS (2)
  - Convulsion [Unknown]
  - Feeling abnormal [Unknown]
